APPROVED DRUG PRODUCT: AMINOPHYLLINE
Active Ingredient: AMINOPHYLLINE
Strength: 25MG/ML
Dosage Form/Route: INJECTABLE;INJECTION
Application: A081142 | Product #001
Applicant: TEVA PARENTERAL MEDICINES INC
Approved: Sep 25, 1991 | RLD: No | RS: No | Type: DISCN